FAERS Safety Report 5947692-3 (Version None)
Quarter: 2008Q4

REPORT INFORMATION
  Report Type: 
  Country: None (occurrence: None)
  Receive Date: 20081021
  Receipt Date: 20080422
  Transmission Date: 20090506
  Serious: Yes (Other)
  Sender: FDA-Public Use
  Company Number: HQWYE781530NOV05

PATIENT
  Age: 44 Year
  Sex: Female

DRUGS (2)
  1. PREMARIN [Suspect]
  2. ESTRATEST [Suspect]

REACTIONS (2)
  - CEREBROVASCULAR ACCIDENT [None]
  - RETINAL VASCULAR THROMBOSIS [None]
